FAERS Safety Report 9970047 (Version 1)
Quarter: 2014Q1

REPORT INFORMATION
  Report Type: Spontaneous
  Country: US (occurrence: None)
  Receive Date: 20140127
  Receipt Date: 20140127
  Transmission Date: 20141002
  Serious: Yes (Life-Threatening, Hospitalization)
  Sender: FDA-Public Use
  Company Number: 1163572

PATIENT
  Age: 55 Year
  Sex: Female
  Weight: 52.16 kg

DRUGS (6)
  1. RITUXIMAB [Suspect]
     Indication: RHEUMATOID ARTHRITIS
     Dosage: INTRAVENOUS (NOT OTHERWISE SPECIFIED)
     Route: 042
     Dates: start: 201207, end: 20120724
  2. ADDERALL (AMPHETAMINE ASPARTATE, AMPHETAMINE SULFATE, DEXTROAMPHETAMINE SACCHARIDE, DEXAMPHETAMINE SULFATE) [Concomitant]
  3. OXYTOCIN (OXYTOCIN) [Concomitant]
  4. ARAVA (LEFLUNOMIDE) [Concomitant]
  5. SULFASALAZINE (SULFASALAZINE) [Concomitant]
  6. KLONOPIN (CLONAZEPAM) [Concomitant]

REACTIONS (2)
  - Myocardial infarction [None]
  - Pyrexia [None]
